FAERS Safety Report 4544490-2 (Version None)
Quarter: 2004Q4

REPORT INFORMATION
  Report Type: 
  Country: None (occurrence: None)
  Receive Date: 20041229
  Receipt Date: 20041209
  Transmission Date: 20050328
  Serious: Yes (Hospitalization)
  Sender: FDA-Public Use
  Company Number: 2004-03912

PATIENT
  Age: 76 Year
  Sex: Male

DRUGS (1)
  1. BCG THERAPEUTICS [Suspect]
     Indication: CARCINOMA IN SITU OF BLADDER
     Dosage: I. VES.
     Route: 043
     Dates: start: 19980101

REACTIONS (4)
  - BLADDER CANCER RECURRENT [None]
  - CARCINOMA IN SITU OF BLADDER [None]
  - GRANULOMA [None]
  - RENAL DISORDER [None]
